FAERS Safety Report 22207271 (Version 2)
Quarter: 2023Q2

REPORT INFORMATION
  Report Type: Spontaneous
  Country: CN (occurrence: CN)
  Receive Date: 20230413
  Receipt Date: 20230419
  Transmission Date: 20230721
  Serious: Yes (Hospitalization)
  Sender: FDA-Public Use
  Company Number: CN-PFIZER INC-PV202300066756

PATIENT
  Age: 5 Year
  Sex: Male
  Weight: 17.5 kg

DRUGS (1)
  1. CYTARABINE [Suspect]
     Active Substance: CYTARABINE
     Indication: Chemotherapy
     Dosage: 1.53 G, Q12 AND D5
     Route: 041
     Dates: start: 20230203, end: 20230203

REACTIONS (4)
  - Myelosuppression [Recovered/Resolved]
  - Pyrexia [Recovered/Resolved]
  - Anal erosion [Recovered/Resolved]
  - Anal infection [Recovered/Resolved]

NARRATIVE: CASE EVENT DATE: 20230213
